FAERS Safety Report 5220823-9 (Version None)
Quarter: 2007Q1

REPORT INFORMATION
  Report Type: 
  Country: None (occurrence: None)
  Receive Date: 20070126
  Receipt Date: 20070117
  Transmission Date: 20070707
  Serious: Yes (Other)
  Sender: FDA-Public Use
  Company Number: CH-BRISTOL-MYERS SQUIBB COMPANY-13645692

PATIENT
  Age: 21 Year
  Sex: Female

DRUGS (2)
  1. TRAZODONE HCL [Suspect]
     Indication: DEPRESSION
     Route: 048
     Dates: start: 20060307, end: 20061023
  2. EFFEXOR [Suspect]
     Indication: DEPRESSION
     Route: 048
     Dates: start: 20060307

REACTIONS (1)
  - DRUG EXPOSURE DURING PREGNANCY [None]
